FAERS Safety Report 10394537 (Version 1)
Quarter: 2014Q3

REPORT INFORMATION
  Report Type: Report from Study
  Country: US (occurrence: US)
  Receive Date: 20140819
  Receipt Date: 20140819
  Transmission Date: 20150326
  Serious: Yes (Other)
  Sender: FDA-Public Use
  Company Number: US-TAKEDA-2014MPI002166

PATIENT
  Age: 64 Year
  Sex: Male
  Weight: 93.6 kg

DRUGS (16)
  1. VELCADE [Suspect]
     Active Substance: BORTEZOMIB
     Indication: PLASMA CELL MYELOMA
     Dosage: UNK
     Route: 042
  2. LENALIDOMIDE [Suspect]
     Active Substance: LENALIDOMIDE
     Indication: PLASMA CELL MYELOMA
     Dosage: 5 MG, QD
     Route: 048
     Dates: start: 20110811
  3. FENTANYL                           /00174602/ [Concomitant]
     Active Substance: FENTANYL
  4. BACTRIM DS [Concomitant]
     Active Substance: SULFAMETHOXAZOLE\TRIMETHOPRIM
  5. COUMADIN [Concomitant]
     Active Substance: WARFARIN SODIUM
  6. OXYCODONE [Concomitant]
     Active Substance: OXYCODONE
  7. ALPHA LIPOIC ACID [Concomitant]
     Active Substance: .ALPHA.-LIPOIC ACID
  8. PROTONIX [Concomitant]
     Active Substance: PANTOPRAZOLE SODIUM
  9. ACYCLOVIR                          /00587301/ [Concomitant]
     Active Substance: ACYCLOVIR
  10. AMOXICILLIN. [Concomitant]
     Active Substance: AMOXICILLIN
  11. LISINOPRIL. [Concomitant]
     Active Substance: LISINOPRIL
  12. CELEXA [Concomitant]
     Active Substance: CITALOPRAM HYDROBROMIDE
  13. COLACE [Concomitant]
     Active Substance: DOCUSATE SODIUM
  14. XANAX [Concomitant]
     Active Substance: ALPRAZOLAM
  15. DEXAMETHASONE. [Suspect]
     Active Substance: DEXAMETHASONE
     Indication: PLASMA CELL MYELOMA
     Route: 048
  16. SENOKOT [Concomitant]
     Active Substance: SENNOSIDES

REACTIONS (1)
  - Chronic myeloid leukaemia [Unknown]

NARRATIVE: CASE EVENT DATE: 20120802
